FAERS Safety Report 6251603-3 (Version None)
Quarter: 2009Q2

REPORT INFORMATION
  Report Type: 
  Country: None (occurrence: None)
  Receive Date: 20090630
  Receipt Date: 20090630
  Transmission Date: 20091009
  Serious: Yes (Hospitalization)
  Sender: FDA-Public Use
  Company Number: JP-RB-017439-09

PATIENT
  Age: 78 Year
  Sex: Male

DRUGS (8)
  1. LEPETAN [Suspect]
     Route: 042
     Dates: start: 20090528, end: 20090528
  2. MAINTENANCE MEDIUM WITH ACETIC ACID (WITH GLUCOSE) [Concomitant]
     Indication: DRUG USE FOR UNKNOWN INDICATION
     Dosage: DOSING INFORMATION UNKNOWN.
     Route: 065
     Dates: start: 20090528
  3. BICALUTAMIDE [Concomitant]
     Indication: DRUG USE FOR UNKNOWN INDICATION
     Route: 065
     Dates: start: 20090528
  4. DOXAZOSIN MESILATE [Concomitant]
     Indication: DRUG USE FOR UNKNOWN INDICATION
     Route: 065
     Dates: start: 20090528
  5. NIFEDIPINE [Concomitant]
     Indication: DRUG USE FOR UNKNOWN INDICATION
     Route: 065
     Dates: start: 20090528
  6. TRANEXAMIC ACID [Concomitant]
     Indication: DRUG USE FOR UNKNOWN INDICATION
     Dosage: DOSING INFORMATION UNKNOWN.
     Route: 065
     Dates: start: 20090528
  7. RABEPRAZOLE SODIUM [Concomitant]
     Indication: DRUG USE FOR UNKNOWN INDICATION
     Route: 065
     Dates: start: 20090528
  8. OLMESARTAN MEDOXOMIL [Concomitant]
     Indication: DRUG USE FOR UNKNOWN INDICATION
     Route: 065
     Dates: start: 20090528

REACTIONS (4)
  - DYSPNOEA [None]
  - GLOSSOPTOSIS [None]
  - INCORRECT ROUTE OF DRUG ADMINISTRATION [None]
  - OXYGEN SATURATION DECREASED [None]
